FAERS Safety Report 5925223-1 (Version None)
Quarter: 2008Q4

REPORT INFORMATION
  Report Type: 
  Country: None (occurrence: None)
  Receive Date: 20081020
  Receipt Date: 20081020
  Transmission Date: 20090506
  Serious: Yes (Life-Threatening, Hospitalization)
  Sender: FDA-Public Use
  Company Number: None

PATIENT
  Age: 52 Year
  Sex: Male
  Weight: 81.6475 kg

DRUGS (1)
  1. DILAUDID [Suspect]

REACTIONS (1)
  - CARDIO-RESPIRATORY ARREST [None]
